FAERS Safety Report 21674592 (Version 1)
Quarter: 2022Q4

REPORT INFORMATION
  Report Type: Spontaneous
  Country: IN (occurrence: IN)
  Receive Date: 20221202
  Receipt Date: 20221202
  Transmission Date: 20230112
  Serious: Yes (Other)
  Sender: FDA-Public Use
  Company Number: IN-PFIZER INC-PV202200115101

PATIENT
  Age: 53 Year
  Sex: Female

DRUGS (1)
  1. PALBOCICLIB [Suspect]
     Active Substance: PALBOCICLIB
     Dosage: 125 MG OD

REACTIONS (4)
  - Oesophageal obstruction [Unknown]
  - Neck mass [Unknown]
  - Feeding disorder [Unknown]
  - Vomiting [Unknown]
